FAERS Safety Report 13587483 (Version 2)
Quarter: 2017Q3

REPORT INFORMATION
  Report Type: Spontaneous
  Country: KR (occurrence: KR)
  Receive Date: 20170526
  Receipt Date: 20170802
  Transmission Date: 20171127
  Serious: No
  Sender: FDA-Public Use
  Company Number: KR-009507513-1705KOR013145

PATIENT
  Age: 43 Year
  Sex: Female
  Weight: 52.6 kg

DRUGS (28)
  1. EMEND (FOSAPREPITANT DIMEGLUMINE) [Suspect]
     Active Substance: FOSAPREPITANT DIMEGLUMINE
     Dosage: 150 MG, ONCE
     Route: 042
     Dates: start: 20161116, end: 20161116
  2. FLUOROURACIL. [Concomitant]
     Active Substance: FLUOROURACIL
     Dosage: 1500 MG, QD; STRENGTH: 1000MG/20ML; CYCLE 2
     Route: 042
     Dates: start: 20161020, end: 20161022
  3. ALBIS [Concomitant]
     Active Substance: BISMUTH SUBCITRATE\RANITIDINE HYDROCHLORIDE\SUCRALFATE
     Indication: PROPHYLAXIS
     Dosage: 2 TABLETS, QD
     Route: 048
     Dates: start: 20160926
  4. DEXAMETHASONE SODIUM PHOSPHATE. [Concomitant]
     Active Substance: DEXAMETHASONE SODIUM PHOSPHATE
     Dosage: 10 MG, ONCE; STRENGTH: 5MG/ML
     Route: 042
     Dates: start: 20161020, end: 20161020
  5. DEXAMETHASONE. [Concomitant]
     Active Substance: DEXAMETHASONE
     Dosage: 8 MG, QD
     Route: 048
     Dates: start: 20161117, end: 20161119
  6. SANCUSO [Concomitant]
     Active Substance: GRANISETRON
     Dosage: 1 ^PK^, QD; STRENGTH: 80.2X66.6 MM2. FORMULATION/ROUTE: PATCH, EXT
     Dates: start: 20161019, end: 20161021
  7. BONALING A [Concomitant]
     Indication: PROPHYLAXIS
     Dosage: 1 TABLET, TID
     Route: 048
     Dates: start: 20160926
  8. FLUOROURACIL. [Concomitant]
     Active Substance: FLUOROURACIL
     Indication: NASOPHARYNGEAL CANCER
     Dosage: 1500 MG, QD; STRENGTH: 1000MG/20ML; CYCLE 1
     Route: 042
     Dates: start: 20160927, end: 20160929
  9. CISPLATIN. [Concomitant]
     Active Substance: CISPLATIN
     Indication: NASOPHARYNGEAL CANCER
     Dosage: 110 MG, ONCE; STRENGTH: 50MG/100ML; CYCLE 1
     Route: 042
     Dates: start: 20160927, end: 20160927
  10. DEXAMETHASONE. [Concomitant]
     Active Substance: DEXAMETHASONE
     Indication: PREMEDICATION
     Dosage: 8 MG, QD
     Route: 048
     Dates: start: 20160928, end: 20160930
  11. SANCUSO [Concomitant]
     Active Substance: GRANISETRON
     Indication: PREMEDICATION
     Dosage: 1 ^PK^, QD; STRENGTH: 80.2X66.6 MM2. FORMULATION/ROUTE: PATCH, EXT
     Dates: start: 20160926, end: 20160928
  12. DEXAMETHASONE SODIUM PHOSPHATE. [Concomitant]
     Active Substance: DEXAMETHASONE SODIUM PHOSPHATE
     Indication: PREMEDICATION
     Dosage: 10 MG, ONCE; STRENGTH: 5MG/ML
     Route: 042
     Dates: start: 20160927, end: 20160927
  13. DEXAMETHASONE. [Concomitant]
     Active Substance: DEXAMETHASONE
     Dosage: 8 MG, QD
     Route: 048
     Dates: start: 20161021, end: 20161023
  14. TARGIN [Concomitant]
     Active Substance: NALOXONE HYDROCHLORIDE\OXYCODONE HYDROCHLORIDE
     Indication: PAIN
     Dosage: 20/10MG (1 TABLET), BID
     Route: 048
     Dates: start: 20160926
  15. LIPITOR [Concomitant]
     Active Substance: ATORVASTATIN CALCIUM
     Indication: HYPERLIPIDAEMIA
     Dosage: 1 TABLET (20 MG), QD
     Route: 048
  16. MIRTAZAPINE. [Concomitant]
     Active Substance: MIRTAZAPINE
     Indication: DEPRESSION
     Dosage: 0.5 TABLET, QD
     Route: 048
     Dates: start: 201608
  17. EMEND (FOSAPREPITANT DIMEGLUMINE) [Suspect]
     Active Substance: FOSAPREPITANT DIMEGLUMINE
     Indication: PROPHYLAXIS OF NAUSEA AND VOMITING
     Dosage: 150 MG, ONCE
     Route: 042
     Dates: start: 20160927, end: 20160927
  18. FLUOROURACIL. [Concomitant]
     Active Substance: FLUOROURACIL
     Dosage: 1500 MG, QD; STRENGTH: 1000MG/20ML; CYCLE 3
     Route: 042
     Dates: start: 20161116, end: 20161118
  19. SCD MAGNESIUM OXIDE [Concomitant]
     Indication: PROPHYLAXIS
     Dosage: 1 TABLET (250 MG), BID
     Route: 048
     Dates: start: 20160926
  20. LANSTON [Concomitant]
     Active Substance: LANSOPRAZOLE
     Indication: PROPHYLAXIS
     Dosage: 1 TABLET (15 MG), QD
     Route: 048
     Dates: start: 20160927
  21. CISPLATIN. [Concomitant]
     Active Substance: CISPLATIN
     Dosage: 110 MG, ONCE; STRENGTH: 50MG/100ML; CYCLE 3
     Route: 042
     Dates: start: 20161116, end: 20161116
  22. DEXAMETHASONE SODIUM PHOSPHATE. [Concomitant]
     Active Substance: DEXAMETHASONE SODIUM PHOSPHATE
     Dosage: 10 MG, ONCE; STRENGTH: 5MG/ML
     Route: 042
     Dates: start: 20161116, end: 20161116
  23. TYLENOL EXTENDED RELIEF CAPLETS [Concomitant]
     Active Substance: ACETAMINOPHEN
     Indication: HEADACHE
     Dosage: 1 TABLET (650 MG), TID
     Route: 048
     Dates: start: 20160926
  24. TYLENOL EXTENDED RELIEF CAPLETS [Concomitant]
     Active Substance: ACETAMINOPHEN
     Indication: PAIN
  25. EMEND (FOSAPREPITANT DIMEGLUMINE) [Suspect]
     Active Substance: FOSAPREPITANT DIMEGLUMINE
     Dosage: 150 MG, ONCE
     Route: 042
     Dates: start: 20161020, end: 20161020
  26. CISPLATIN. [Concomitant]
     Active Substance: CISPLATIN
     Dosage: 110 MG, ONCE; STRENGTH: 50MG/100ML; CYCLE 2
     Route: 042
     Dates: start: 20161020, end: 20161020
  27. SANCUSO [Concomitant]
     Active Substance: GRANISETRON
     Dosage: 1 ^PK^, QD; STRENGTH: 80.2X66.6 MM2. FORMULATION/ROUTE: PATCH, EXT
     Dates: start: 20161115, end: 20161117
  28. MIRTAZAPINE. [Concomitant]
     Active Substance: MIRTAZAPINE
     Dosage: 1 TABLET (15 MG), QD
     Route: 048
     Dates: start: 20161021

REACTIONS (3)
  - Pyrexia [Recovered/Resolved]
  - Cough [Recovering/Resolving]
  - Depressed mood [Recovering/Resolving]

NARRATIVE: CASE EVENT DATE: 20160930
